FAERS Safety Report 9009166 (Version 1)
Quarter: 2013Q1

REPORT INFORMATION
  Report Type: Report from Study
  Country: DK (occurrence: DK)
  Receive Date: 20130111
  Receipt Date: 20130111
  Transmission Date: 20140127
  Serious: Yes (Hospitalization)
  Sender: FDA-Public Use
  Company Number: DK-ROCHE-1176866

PATIENT
  Sex: 0

DRUGS (4)
  1. TRASTUZUMAB [Suspect]
     Indication: GASTRIC CANCER
     Dosage: DATE OF LAST DOSE PRIOR TO SAE: 22/SEP/2011
     Route: 065
     Dates: start: 20110519
  2. CAPECITABINE [Suspect]
     Indication: GASTRIC CANCER
     Dosage: DATE OF LAST DOSE PRIOR TO SAE: 22/SEP/2011
     Route: 065
     Dates: start: 20110519
  3. DOCETAXEL [Suspect]
     Indication: GASTRIC CANCER
     Dosage: DATE OF LAST DOSE PRIOR TO SAE: 22/SEP/2011
     Route: 065
     Dates: start: 20110519
  4. OXALIPLATIN [Suspect]
     Indication: GASTRIC CANCER
     Dosage: DATE OF LAST DOSE PRIOR TO SAE: 22/SEP/2011
     Route: 065
     Dates: start: 20110519

REACTIONS (1)
  - Abscess [Recovered/Resolved with Sequelae]
